FAERS Safety Report 5527910-6 (Version None)
Quarter: 2007Q4

REPORT INFORMATION
  Report Type: 
  Country: None (occurrence: None)
  Receive Date: 20071126
  Receipt Date: 20071126
  Transmission Date: 20080405
  Serious: No
  Sender: FDA-Public Use
  Company Number: None

PATIENT
  Age: 47 Year
  Sex: Female
  Weight: 58.9676 kg

DRUGS (2)
  1. HERCEPTIN [Suspect]
     Indication: BREAST CANCER
     Dosage: 90 MINUTES   EVERY 3 WEEKS   IV DRIP
     Route: 041
     Dates: start: 20071106, end: 20071201
  2. CHANTIX [Suspect]
     Indication: SMOKING CESSATION THERAPY
     Dosage: 1 MG  TWICH DAILY  PO
     Route: 048
     Dates: start: 20071024, end: 20071109

REACTIONS (7)
  - ABNORMAL BEHAVIOUR [None]
  - AGGRESSION [None]
  - CHILLS [None]
  - HEADACHE [None]
  - MYALGIA [None]
  - PYREXIA [None]
  - SUICIDAL IDEATION [None]
